FAERS Safety Report 8531985-X (Version None)
Quarter: 2012Q3

REPORT INFORMATION
  Report Type: 
  Country: None (occurrence: None)
  Receive Date: 20120723
  Receipt Date: 20120720
  Transmission Date: 20120928
  Serious: Yes (Death, Hospitalization)
  Sender: FDA-Public Use
  Company Number: CHPA2012US015619

PATIENT
  Sex: Female

DRUGS (1)
  1. MAALOX ANTACID/ANTIGAS MAX LIQ [Suspect]
     Dosage: UNK, UNK
     Route: 048

REACTIONS (2)
  - CARDIAC DISORDER [None]
  - OESOPHAGEAL INJURY [None]
